FAERS Safety Report 13332777 (Version 1)
Quarter: 2017Q1

REPORT INFORMATION
  Report Type: Other
  Country: FR (occurrence: FR)
  Receive Date: 20170314
  Receipt Date: 20170314
  Transmission Date: 20170428
  Serious: Yes (Other)
  Sender: FDA-Public Use
  Company Number: FR-ACTELION-A-CH2017-150565

PATIENT
  Age: 74 Year
  Sex: Male

DRUGS (2)
  1. BOSENTAN. [Suspect]
     Active Substance: BOSENTAN
     Indication: PULMONARY VENO-OCCLUSIVE DISEASE
     Route: 048
  2. EPOPROSTENOL. [Suspect]
     Active Substance: EPOPROSTENOL
     Indication: PULMONARY VENO-OCCLUSIVE DISEASE
     Dosage: 10 NG/KG, PER MIN
     Route: 042

REACTIONS (5)
  - Fatigue [Recovered/Resolved]
  - Micrococcus test positive [Recovered/Resolved]
  - Catheter removal [Unknown]
  - Dyspnoea [Recovered/Resolved]
  - Device related infection [Recovered/Resolved]
